FAERS Safety Report 19497971 (Version 1)
Quarter: 2021Q3

REPORT INFORMATION
  Report Type: Report from Study
  Country: US (occurrence: US)
  Receive Date: 20210706
  Receipt Date: 20210706
  Transmission Date: 20211014
  Serious: Yes (Other)
  Sender: FDA-Public Use
  Company Number: US-PFIZER INC-2021807313

PATIENT

DRUGS (1)
  1. KETAMINE HCL [Suspect]
     Active Substance: KETAMINE HYDROCHLORIDE
     Indication: MULTIPLE SCLEROSIS
     Dosage: 0.5 MG/KG; (SINGLE INTRAVENOUS INFUSION)
     Route: 042

REACTIONS (13)
  - Hypoaesthesia [Unknown]
  - Disturbance in attention [Unknown]
  - Mental impairment [Unknown]
  - Flushing [Unknown]
  - Restlessness [Unknown]
  - Dry mouth [Unknown]
  - Blood pressure increased [Unknown]
  - Feeling hot [Unknown]
  - Taste disorder [Unknown]
  - Depression [Unknown]
  - Dizziness [Unknown]
  - Tremor [Unknown]
  - Euphoric mood [Unknown]
